FAERS Safety Report 20561055 (Version 1)
Quarter: 2022Q1

REPORT INFORMATION
  Report Type: Spontaneous
  Country: US (occurrence: None)
  Receive Date: 20220306
  Receipt Date: 20220306
  Transmission Date: 20220423
  Serious: Yes (Life-Threatening, Disabling)
  Sender: FDA-Public Use
  Company Number: None

PATIENT
  Age: 41 Year
  Sex: Female
  Weight: 63.9 kg

DRUGS (2)
  1. INSULIN LISPRO [Suspect]
     Active Substance: INSULIN LISPRO
     Indication: Type 1 diabetes mellitus
     Dosage: OTHER QUANTITY : 1 UNITS;?FREQUENCY : AS NEEDED;?OTHER ROUTE : INSULIN PUMP;?
     Route: 050
     Dates: start: 20211128, end: 20220305
  2. medtronic insulin pump and accessories [Concomitant]

REACTIONS (8)
  - Drug hypersensitivity [None]
  - Injection site inflammation [None]
  - Injection site pain [None]
  - Hyperglycaemia [None]
  - Product measured potency issue [None]
  - Insulin resistance [None]
  - Therapeutic product effect decreased [None]
  - Product substitution issue [None]

NARRATIVE: CASE EVENT DATE: 20220305
